FAERS Safety Report 10185477 (Version 1)
Quarter: 2014Q2

REPORT INFORMATION
  Report Type: Spontaneous
  Country: US (occurrence: US)
  Receive Date: 20140521
  Receipt Date: 20140521
  Transmission Date: 20141212
  Serious: Yes (Other)
  Sender: FDA-Public Use
  Company Number: US-PFIZER INC-2014135297

PATIENT
  Age: 51 Year
  Sex: Female
  Weight: 48.53 kg

DRUGS (1)
  1. PREMARIN [Suspect]
     Indication: VULVOVAGINAL DRYNESS
     Dosage: 1 G, 3X/WEEK
     Route: 067

REACTIONS (1)
  - Endometrial cancer metastatic [Recovered/Resolved]
